FAERS Safety Report 7921109-1 (Version None)
Quarter: 2011Q4

REPORT INFORMATION
  Report Type: 
  Country: None (occurrence: None)
  Receive Date: 20111117
  Receipt Date: 20111024
  Transmission Date: 20120403
  Serious: Yes (Death)
  Sender: FDA-Public Use
  Company Number: IE-NOVOPROD-336846

PATIENT

DRUGS (4)
  1. NOVORAPID [Suspect]
     Indication: TYPE 1 DIABETES MELLITUS
     Dosage: BEFORE EACH MEAL
     Route: 065
  2. VARENICLINE TARTRATE [Suspect]
     Indication: SMOKING CESSATION THERAPY
     Dosage: 0.5 MG, QD
     Dates: start: 20100806, end: 20101101
  3. LANTUS [Suspect]
     Indication: TYPE 1 DIABETES MELLITUS
     Dosage: AT BEDTIME
     Dates: start: 20100806
  4. VARENICLINE TARTRATE [Suspect]
     Dosage: 1 MG, BID
     Dates: start: 20100820, end: 20101120

REACTIONS (2)
  - HYPOXIC-ISCHAEMIC ENCEPHALOPATHY [None]
  - ACCIDENTAL OVERDOSE [None]
